FAERS Safety Report 8018342-X (Version None)
Quarter: 2012Q1

REPORT INFORMATION
  Report Type: 
  Country: None (occurrence: None)
  Receive Date: 20120103
  Receipt Date: 20111228
  Transmission Date: 20120608
  Serious: Yes (Other)
  Sender: FDA-Public Use
  Company Number: US-PFIZER INC-2011084389

PATIENT
  Age: 73 Year
  Sex: Female

DRUGS (3)
  1. SYNTHROID [Concomitant]
     Indication: DEPRESSION
     Dosage: UNK
     Dates: start: 19910101
  2. PREMARIN [Suspect]
     Indication: OFF LABEL USE
     Dosage: 1.25 MG, 1X/DAY
     Dates: start: 19810101
  3. PREMARIN [Suspect]
     Indication: CONTRACEPTION
     Dosage: UNK

REACTIONS (9)
  - NIGHT SWEATS [None]
  - HYSTERECTOMY [None]
  - SKIN DISORDER [None]
  - DANDRUFF [None]
  - ACNE [None]
  - MYOCARDIAL INFARCTION [None]
  - ALOPECIA [None]
  - MUSCLE SPASMS [None]
  - VAGINAL HAEMORRHAGE [None]
